FAERS Safety Report 12597599 (Version 1)
Quarter: 2016Q3

REPORT INFORMATION
  Report Type: Report from Study
  Country: US (occurrence: US)
  Receive Date: 20160726
  Receipt Date: 20160726
  Transmission Date: 20161109
  Serious: Yes (Other)
  Sender: FDA-Public Use
  Company Number: US-ABBVIE-16P-163-1665526-00

PATIENT
  Age: 24 Year
  Sex: Female

DRUGS (6)
  1. MULTI VITAMIN [Concomitant]
     Active Substance: VITAMINS
     Route: 048
     Dates: start: 20160630
  2. LUPRON DEPOT [Suspect]
     Active Substance: LEUPROLIDE ACETATE
     Indication: ENDOMETRIOSIS
     Route: 050
     Dates: start: 201405, end: 201501
  3. AYGESTIN [Concomitant]
     Active Substance: NORETHINDRONE ACETATE
     Dosage: DAILY
     Route: 048
     Dates: start: 20160630
  4. LUPRON DEPOT [Suspect]
     Active Substance: LEUPROLIDE ACETATE
     Indication: ENDOMETRIOSIS
     Route: 050
     Dates: start: 201602
  5. MULTI VITAMIN [Concomitant]
     Active Substance: VITAMINS
     Indication: VITAMIN SUPPLEMENTATION
     Route: 048
     Dates: end: 20160628
  6. AYGESTIN [Concomitant]
     Active Substance: NORETHINDRONE ACETATE
     Indication: PRODUCT USED FOR UNKNOWN INDICATION
     Dosage: DAILY
     Route: 048
     Dates: start: 201602, end: 20160628

REACTIONS (16)
  - Pelvic pain [Not Recovered/Not Resolved]
  - Metrorrhagia [Recovered/Resolved]
  - Mood swings [Not Recovered/Not Resolved]
  - Dyspareunia [Not Recovered/Not Resolved]
  - Pain [Not Recovered/Not Resolved]
  - Nausea [Not Recovered/Not Resolved]
  - Metrorrhagia [Not Recovered/Not Resolved]
  - Breast tenderness [Not Recovered/Not Resolved]
  - Exposure during pregnancy [Unknown]
  - Pelvic pain [Recovered/Resolved]
  - Ovarian cyst ruptured [Recovering/Resolving]
  - Depression [Not Recovered/Not Resolved]
  - Chest discomfort [Recovered/Resolved]
  - Pregnancy test positive [Recovered/Resolved]
  - Panic attack [Not Recovered/Not Resolved]
  - Vomiting [Not Recovered/Not Resolved]

NARRATIVE: CASE EVENT DATE: 2014
